FAERS Safety Report 25419445 (Version 2)
Quarter: 2025Q2

REPORT INFORMATION
  Report Type: Report from Study
  Country: CO (occurrence: CO)
  Receive Date: 20250610
  Receipt Date: 20250611
  Transmission Date: 20250716
  Serious: Yes (Other)
  Sender: MERCK SHARP & DOHME LLC
  Company Number: CO-009507513-2274652

PATIENT
  Age: 74 Year
  Sex: Female

DRUGS (4)
  1. KEYTRUDA [Suspect]
     Active Substance: PEMBROLIZUMAB
     Indication: Head and neck cancer
     Dosage: 100MG, EVERY 3 WEEKS
     Route: 042
     Dates: start: 20250403
  2. KEYTRUDA [Suspect]
     Active Substance: PEMBROLIZUMAB
     Indication: Head and neck cancer
     Dosage: 200MG, EVERY 3 WEEKS
     Route: 042
     Dates: start: 20250114
  3. KEYTRUDA [Suspect]
     Active Substance: PEMBROLIZUMAB
     Indication: Head and neck cancer
     Dosage: 200MG, EVERY 3 WEEKS
     Route: 042
     Dates: start: 20250424, end: 20250424
  4. KEYTRUDA [Suspect]
     Active Substance: PEMBROLIZUMAB
     Indication: Head and neck cancer
     Dosage: CYCLE #17
     Route: 042
     Dates: start: 20250515, end: 20250515

REACTIONS (5)
  - Maxillofacial space infection [Recovering/Resolving]
  - Vomiting [Recovering/Resolving]
  - Off label use [Recovering/Resolving]
  - Depression [Recovering/Resolving]
  - Food intolerance [Recovering/Resolving]

NARRATIVE: CASE EVENT DATE: 20250403
